FAERS Safety Report 6827157-7 (Version None)
Quarter: 2010Q3

REPORT INFORMATION
  Report Type: 
  Country: None (occurrence: None)
  Receive Date: 20100709
  Receipt Date: 20100701
  Transmission Date: 20110219
  Serious: Yes (Other)
  Sender: FDA-Public Use
  Company Number: CN-BRISTOL-MYERS SQUIBB COMPANY-15183353

PATIENT
  Age: 46 Year
  Sex: Male

DRUGS (2)
  1. ERBITUX [Suspect]
     Indication: LARGE CELL CARCINOMA OF THE RESPIRATORY TRACT STAGE UNSPECIFIED
     Dosage: ALSO TAKEN 250MG/M2 ONCE A WEEK FOR 6WEEKS;
     Route: 042
     Dates: start: 20090601
  2. PEMETREXED DISODIUM [Concomitant]
     Indication: LARGE CELL CARCINOMA OF THE RESPIRATORY TRACT STAGE UNSPECIFIED
     Dosage: DAY 1 AND 21
     Route: 042

REACTIONS (3)
  - BLOOD CREATINE PHOSPHOKINASE INCREASED [None]
  - MUSCLE INJURY [None]
  - PAIN IN EXTREMITY [None]
